FAERS Safety Report 15225147 (Version 1)
Quarter: 2018Q3

REPORT INFORMATION
  Report Type: Spontaneous
  Country: US (occurrence: US)
  Receive Date: 20180801
  Receipt Date: 20180801
  Transmission Date: 20181010
  Serious: No
  Sender: FDA-Public Use
  Company Number: US-009507513-1412USA006208

PATIENT
  Age: 21 Year
  Sex: Female

DRUGS (4)
  1. LAMIVUDINE AND ZIDOVUDINE [Concomitant]
     Active Substance: LAMIVUDINE\ZIDOVUDINE
     Dosage: COURSE NUMBER: 1; TOTAL DAILY DOSE: 2 DF; STARTED IN 15TH WEEKS OF GESTATION
     Route: 048
     Dates: start: 20130917
  2. RALTEGRAVIR POTASSIUM [Suspect]
     Active Substance: RALTEGRAVIR POTASSIUM
     Dosage: COURSE NUMBER: 1; TOTAL DAILY DOSE: 800 DF; STRATED IN 38TH WEEK OF GESTATION, THIRD TRIMESTER
     Route: 048
     Dates: start: 20140225
  3. NELFINAVIR MESYLATE [Concomitant]
     Active Substance: NELFINAVIR MESYLATE
     Dosage: COURSE NUMBER:1; TOTAL DAILY DOSE: 2500 DF; STARTED IN 15TH WEEK OF GESTATION
     Route: 048
     Dates: start: 20130917
  4. ZIDOVUDINE. [Concomitant]
     Active Substance: ZIDOVUDINE
     Dosage: COURSE NUMBER: 1; TOTAL DAILY DOSE: 1365 DF; BEGAN IN 38, ENDED IN 39 GESTATIONAL WEEK
     Route: 042

REACTIONS (2)
  - Maternal exposure during pregnancy [Recovered/Resolved]
  - No adverse event [Unknown]
